FAERS Safety Report 8505702-3 (Version None)
Quarter: 2012Q3

REPORT INFORMATION
  Report Type: 
  Country: None (occurrence: None)
  Receive Date: 20120712
  Receipt Date: 20120703
  Transmission Date: 20120928
  Serious: Yes (Hospitalization)
  Sender: FDA-Public Use
  Company Number: FR-JNJFOC-20120701920

PATIENT
  Sex: Female

DRUGS (3)
  1. RISPERDAL [Suspect]
     Indication: COGNITIVE DISORDER
     Route: 048
     Dates: end: 20100302
  2. MIANSERIN [Suspect]
     Indication: DEPRESSION
     Route: 048
     Dates: end: 20100302
  3. EQUANIL [Suspect]
     Indication: DEPRESSION
     Route: 048
     Dates: end: 20100302

REACTIONS (3)
  - FALL [None]
  - FOOT FRACTURE [None]
  - COGNITIVE DISORDER [None]
